FAERS Safety Report 25585768 (Version 1)
Quarter: 2025Q3

REPORT INFORMATION
  Report Type: Spontaneous
  Country: EU (occurrence: EU)
  Receive Date: 20250721
  Receipt Date: 20250721
  Transmission Date: 20251021
  Serious: Yes (Hospitalization)
  Sender: ABBVIE
  Company Number: None

PATIENT
  Age: 67 Year
  Sex: Male
  Weight: 80 kg

DRUGS (13)
  1. UPADACITINIB [Suspect]
     Active Substance: UPADACITINIB
     Indication: Crohn^s disease
     Route: 048
     Dates: start: 20240411, end: 20250623
  2. ATORVASTATIN [Concomitant]
     Active Substance: ATORVASTATIN
     Indication: Cerebrovascular disorder
     Dosage: 80 MG AT DINNER; NORMOGEN 80 MG FILM-COATED TABLETS, 28 TABLETS
     Route: 048
     Dates: start: 20250626
  3. ASPIRIN [Concomitant]
     Active Substance: ASPIRIN
     Indication: Cerebrovascular disorder
     Route: 048
     Dates: start: 20250627
  4. ENALAPRIL [Concomitant]
     Active Substance: ENALAPRIL
     Indication: Cerebrovascular disorder
     Route: 048
     Dates: start: 20250627
  5. OMEPRAZOLE [Concomitant]
     Active Substance: OMEPRAZOLE
     Indication: Gastroenteritis
     Dosage: 20 MG AT BREAKFAST; 20 MG GASTRO-RESISTANT  HARD CAPSULES,  56 CAPSULES (BOTTLE)
     Route: 048
     Dates: start: 20200214
  6. CARVEDILOL [Concomitant]
     Active Substance: CARVEDILOL
     Indication: Product used for unknown indication
     Dosage: 12.5 MG EVERY 12 HOURS;  6,25 MG TABLETS, 28 TABLETS
     Route: 048
     Dates: start: 20210830
  7. Premax [Concomitant]
     Indication: Cerebrovascular disorder
     Dosage: 25 MG AT BREAKFAST AND DINNER;  25 MG TABLETS, 56 TABLETS
     Route: 048
     Dates: start: 20250626
  8. ACETAMINOPHEN [Concomitant]
     Active Substance: ACETAMINOPHEN
     Indication: Tarsal tunnel syndrome
     Dosage: 1 MG AT BREAKFAST AT LUNCH AND DINNER; 1 G TABLETS EFG , 40 TABLETS
     Route: 048
     Dates: start: 20250422
  9. FERROUS SULFATE [Concomitant]
     Active Substance: FERROUS SULFATE
     Indication: Gastroenteritis
     Dosage: 105 MG EVERY 24 HOURS; 105 MG PROLONGED-RELEASE TABLETS, 30 TABLETS
     Route: 048
     Dates: start: 20250530
  10. Amlodipino cinfa [Concomitant]
     Indication: Cerebrovascular disorder
     Route: 048
     Dates: start: 20250626
  11. FOLIC ACID [Concomitant]
     Active Substance: FOLIC ACID
     Indication: Nausea
     Route: 048
     Dates: start: 20240316
  12. Lormetazepam Cinfa [Concomitant]
     Indication: Insomnia
     Dosage: 1 MG EVERY 24 HOURS AT NIGHT; 1 MG TABLETS, 30 TABLETS
     Route: 048
     Dates: start: 20250516
  13. CEFIXIME [Concomitant]
     Active Substance: CEFIXIME
     Indication: Urinary tract infection
     Route: 048
     Dates: start: 20250627, end: 20250628

REACTIONS (1)
  - Lacunar stroke [Recovered/Resolved with Sequelae]

NARRATIVE: CASE EVENT DATE: 20250704
